FAERS Safety Report 8939801 (Version 1)
Quarter: 2012Q4

REPORT INFORMATION
  Report Type: 
  Country: US (occurrence: US)
  Receive Date: 20121201
  Receipt Date: 20121201
  Transmission Date: 20130627
  Serious: Yes (Hospitalization)
  Sender: FDA-Public Use
  Company Number: US-US-EMD SERONO, INC.-7178594

PATIENT
  Sex: Male

DRUGS (3)
  1. REBIF [Suspect]
     Indication: MULTIPLE SCLEROSIS
     Dates: start: 20111124
  2. BACLOFEN [Concomitant]
     Indication: TREMOR
  3. PROVIGIL [Concomitant]
     Indication: ASTHENIA

REACTIONS (2)
  - Emphysema [Not Recovered/Not Resolved]
  - Pulmonary mass [Recovering/Resolving]
